FAERS Safety Report 9831102 (Version 1)
Quarter: 2014Q1

REPORT INFORMATION
  Report Type: Spontaneous
  Country: US (occurrence: US)
  Receive Date: 20140120
  Receipt Date: 20140120
  Transmission Date: 20141002
  Serious: Yes (Other)
  Sender: FDA-Public Use
  Company Number: US-MYLANLABS-2014S1000624

PATIENT
  Age: 47 Year
  Sex: Male

DRUGS (13)
  1. DULOXETINE [Suspect]
     Indication: DEPRESSION
     Dosage: 120MG DAILY
     Route: 065
  2. TRAZODONE [Suspect]
     Indication: DEPRESSION
     Dosage: 100MG EVERY EVENING
     Route: 065
  3. ONDANSETRON [Suspect]
     Dosage: 4MG
     Route: 065
  4. FENTANYL [Suspect]
     Indication: INDUCTION OF ANAESTHESIA
     Route: 065
  5. GABAPENTIN [Concomitant]
     Indication: PAIN
     Dosage: 2700MG PER DAY
     Route: 065
  6. MIDAZOLAM [Concomitant]
     Indication: INDUCTION OF ANAESTHESIA
     Route: 065
  7. PROPOFOL [Concomitant]
     Indication: INDUCTION OF ANAESTHESIA
     Route: 065
  8. SUXAMETHONIUM CHLORIDE [Concomitant]
     Indication: INDUCTION OF ANAESTHESIA
     Route: 065
  9. DESFLURANE [Concomitant]
     Indication: MAINTENANCE OF ANAESTHESIA
     Dosage: 6-8% INSPIRED; OXYGEN:AIR 50%
     Route: 065
  10. VECURONIUM BROMIDE [Concomitant]
     Indication: MAINTENANCE OF ANAESTHESIA
     Dosage: 15MG IN DIVIDED DOSES
     Route: 065
  11. KETAMINE [Concomitant]
     Dosage: 20MG
     Route: 065
  12. GLYCOPYRROLATE [Concomitant]
     Indication: NEUROMUSCULAR BLOCKADE REVERSAL
     Dosage: 0.4MG
     Route: 065
  13. NEOSTIGMINE [Concomitant]
     Indication: NEUROMUSCULAR BLOCKADE REVERSAL
     Dosage: 2.5MG
     Route: 065

REACTIONS (1)
  - Serotonin syndrome [Recovered/Resolved]
